FAERS Safety Report 4369192-7 (Version None)
Quarter: 2004Q2

REPORT INFORMATION
  Report Type: 
  Country: None (occurrence: None)
  Receive Date: 20040527
  Receipt Date: 20040512
  Transmission Date: 20050107
  Serious: Yes (Disabling, Other)
  Sender: FDA-Public Use
  Company Number: US_0405103034

PATIENT
  Age: 39 Year
  Sex: 0

DRUGS (1)
  1. XIGRIS [Suspect]
     Indication: SEPSIS

REACTIONS (4)
  - APALLIC SYNDROME [None]
  - DEVICE FAILURE [None]
  - ENCEPHALOPATHY [None]
  - SEPSIS [None]
